FAERS Safety Report 8176696-8 (Version None)
Quarter: 2012Q1

REPORT INFORMATION
  Report Type: 
  Country: None (occurrence: None)
  Receive Date: 20120228
  Receipt Date: 20120216
  Transmission Date: 20120608
  Serious: Yes (Death)
  Sender: FDA-Public Use
  Company Number: 2012-0810

PATIENT
  Age: 67 Year
  Sex: Female

DRUGS (5)
  1. SOMATULINE DEPOT [Suspect]
     Indication: MALIGNANT PERITONEAL NEOPLASM
     Dosage: 60 MG (60 MG, 1 IN 28 D),INTRAMUSCULAR
     Route: 030
     Dates: start: 20120126, end: 20120126
  2. OXYNORM (OXYCONE HYDROCHLORIDE) [Concomitant]
  3. QUESTRAN [Concomitant]
  4. SOMATULINE DEPOT [Suspect]
  5. ANTIBIOTICS (ANTIBIOTICS) [Concomitant]

REACTIONS (1)
  - DEATH [None]
